FAERS Safety Report 11184388 (Version 1)
Quarter: 2015Q2

REPORT INFORMATION
  Report Type: Spontaneous
  Country: JP (occurrence: JP)
  Receive Date: 20150612
  Receipt Date: 20150612
  Transmission Date: 20150821
  Serious: Yes (Death)
  Sender: FDA-Public Use
  Company Number: JP-MALLINCKRODT-T201502965

PATIENT
  Age: 57 Year
  Sex: Male
  Weight: 53 kg

DRUGS (21)
  1. MORPHINE HYDROCHLORIDE [Concomitant]
     Active Substance: MORPHINE HYDROCHLORIDE
     Dosage: 320 MG
     Route: 051
     Dates: start: 20150312, end: 20150313
  2. MS CONTIN [Concomitant]
     Active Substance: MORPHINE SULFATE
     Dosage: 180 MG
     Route: 048
     Dates: start: 20150326, end: 20150401
  3. MORPHINE HYDROCHLORIDE [Concomitant]
     Active Substance: MORPHINE HYDROCHLORIDE
     Dosage: 10 MG
     Route: 008
     Dates: start: 20150416, end: 20150425
  4. METHADONE [Suspect]
     Active Substance: METHADONE HYDROCHLORIDE
     Indication: CANCER PAIN
     Dosage: 10 MG, (30 MG DAILY DOSE)
     Route: 048
     Dates: start: 20150308, end: 20150314
  5. MORPHINE HYDROCHLORIDE [Concomitant]
     Active Substance: MORPHINE HYDROCHLORIDE
     Dosage: 16 - 28 MG, P.R.N.
     Route: 051
     Dates: start: 20150307
  6. METHADONE [Suspect]
     Active Substance: METHADONE HYDROCHLORIDE
     Dosage: 20 MG, (60 MG DAILY DOSE)
     Route: 048
     Dates: start: 20150322, end: 20150401
  7. MORPHINE HYDROCHLORIDE [Concomitant]
     Active Substance: MORPHINE HYDROCHLORIDE
     Indication: NERVE BLOCK
     Dosage: 4 MG
     Route: 008
     Dates: start: 20150408, end: 20150416
  8. METHADONE [Suspect]
     Active Substance: METHADONE HYDROCHLORIDE
     Dosage: 30 MG, (90 MG DAILY DOSE)
     Route: 048
     Dates: start: 20150401, end: 20150409
  9. MORPHINE HYDROCHLORIDE [Concomitant]
     Active Substance: MORPHINE HYDROCHLORIDE
     Dosage: 480 MG
     Route: 051
     Dates: start: 20150309, end: 20150311
  10. MORPHINE HYDROCHLORIDE [Concomitant]
     Active Substance: MORPHINE HYDROCHLORIDE
     Dosage: UNK
  11. METHADONE [Suspect]
     Active Substance: METHADONE HYDROCHLORIDE
     Dosage: 15 MG (45 MG DAILY DOSE)
     Route: 048
     Dates: start: 20150315, end: 20150321
  12. MS CONTIN [Concomitant]
     Active Substance: MORPHINE SULFATE
     Dosage: 90 MG
     Route: 048
     Dates: start: 20150401, end: 20150408
  13. METHADONE [Suspect]
     Active Substance: METHADONE HYDROCHLORIDE
     Dosage: 10 MG, (30 MG, DAILY DOSE)
     Route: 048
     Dates: start: 20150409, end: 20150418
  14. MORPHINE HYDROCHLORIDE [Concomitant]
     Active Substance: MORPHINE HYDROCHLORIDE
     Dosage: 600 MG
     Route: 051
     Dates: start: 20150304, end: 20150306
  15. MORPHINE HYDROCHLORIDE [Concomitant]
     Active Substance: MORPHINE HYDROCHLORIDE
     Dosage: 560 MG
     Route: 051
     Dates: start: 20150306, end: 20150309
  16. SPIRONOLACTON [Concomitant]
     Active Substance: SPIRONOLACTONE
     Dosage: 150 MG
     Route: 048
     Dates: start: 20150313, end: 20150414
  17. MORPHINE HYDROCHLORIDE [Concomitant]
     Active Substance: MORPHINE HYDROCHLORIDE
     Dosage: 400 MG
     Route: 051
     Dates: start: 20150311, end: 20150312
  18. MORPHINE HYDROCHLORIDE [Concomitant]
     Active Substance: MORPHINE HYDROCHLORIDE
     Dosage: 400 MG
     Route: 051
     Dates: start: 20150313, end: 20150322
  19. CELECOX [Concomitant]
     Active Substance: CELECOXIB
     Dosage: 400 MG
     Route: 048
     Dates: start: 20150318, end: 20150401
  20. TAKEPRON [Concomitant]
     Active Substance: LANSOPRAZOLE
     Dosage: 15 MG
     Route: 048
     Dates: start: 20150318, end: 20150418
  21. ANAPEINE [Concomitant]
     Active Substance: ROPIVACAINE HYDROCHLORIDE
     Indication: NERVE BLOCK
     Dosage: 120 MG
     Route: 008
     Dates: start: 20150408, end: 20150425

REACTIONS (1)
  - Small intestine carcinoma [Fatal]

NARRATIVE: CASE EVENT DATE: 20150425
